FAERS Safety Report 4925859-0 (Version None)
Quarter: 2006Q1

REPORT INFORMATION
  Report Type: 
  Country: None (occurrence: None)
  Receive Date: 20060224
  Receipt Date: 20060224
  Transmission Date: 20060701
  Serious: Yes (Other)
  Sender: FDA-Public Use
  Company Number: None

PATIENT
  Sex: Female
  Weight: 68.0396 kg

DRUGS (1)
  1. ALEVE [Suspect]
     Indication: BACK PAIN
     Dosage: ONCE A DAY FOR 1 D ONCE A DAY FOR 2 D
     Dates: start: 20060215, end: 20060217

REACTIONS (1)
  - STEVENS-JOHNSON SYNDROME [None]
